FAERS Safety Report 12442116 (Version 1)
Quarter: 2016Q2

REPORT INFORMATION
  Report Type: Spontaneous
  Country: US (occurrence: US)
  Receive Date: 20160607
  Receipt Date: 20160607
  Transmission Date: 20160815
  Serious: No
  Sender: FDA-Public Use
  Company Number: US-ACTAVIS-2015-28184

PATIENT
  Age: 74 Year
  Sex: Female

DRUGS (4)
  1. FENTANYL-25 (WATSON LABORATORIES) [Suspect]
     Active Substance: FENTANYL
     Indication: BACK PAIN
     Dosage: 25 MCG/HR, UNKNOWN
     Route: 062
     Dates: start: 20151202, end: 20151218
  2. PRAVASTATIN [Concomitant]
     Active Substance: PRAVASTATIN\PRAVASTATIN SODIUM
     Indication: BLOOD CHOLESTEROL INCREASED
     Dosage: UNK UNK, UNKNOWN
     Route: 065
  3. ZOLPIDEM [Concomitant]
     Active Substance: ZOLPIDEM\ZOLPIDEM TARTRATE
     Indication: INSOMNIA
     Dosage: UNK UNK, UNKNOWN
     Route: 065
  4. TRAMADOL HYDROCHLORIDE (AELLC) [Suspect]
     Active Substance: TRAMADOL HYDROCHLORIDE
     Indication: BACK PAIN
     Dosage: 50 MG, Q6H
     Route: 065
     Dates: start: 20151202, end: 201512

REACTIONS (7)
  - Somnolence [Not Recovered/Not Resolved]
  - Drug ineffective [Not Recovered/Not Resolved]
  - Nausea [Not Recovered/Not Resolved]
  - Dizziness [Unknown]
  - Tremor [Not Recovered/Not Resolved]
  - Malaise [Unknown]
  - Contraindicated drug administered [Recovered/Resolved]

NARRATIVE: CASE EVENT DATE: 201512
